FAERS Safety Report 17040259 (Version 2)
Quarter: 2019Q4

REPORT INFORMATION
  Report Type: Spontaneous
  Country: DE (occurrence: DE)
  Receive Date: 20191116
  Receipt Date: 20191119
  Transmission Date: 20200122
  Serious: Yes (Life-Threatening, Hospitalization, Other)
  Sender: FDA-Public Use
  Company Number: DE-MYLANLABS-2019M1109458

PATIENT
  Sex: Female
  Weight: 84 kg

DRUGS (5)
  1. DEXAMETHASONE. [Concomitant]
     Active Substance: DEXAMETHASONE
     Indication: PROPHYLAXIS
     Dosage: 12 MILLIGRAM, QD
     Route: 042
     Dates: start: 20190515, end: 20190515
  2. EPIRUBICIN [Concomitant]
     Active Substance: EPIRUBICIN
     Indication: BREAST CANCER
     Dosage: 75 MILLIGRAM/SQ. METER, QD
     Route: 042
     Dates: start: 20190515, end: 20190515
  3. PEGFILGRASTIM [Suspect]
     Active Substance: PEGFILGRASTIM
     Indication: PRODUCT USED FOR UNKNOWN INDICATION
     Dosage: UNK
     Route: 065
  4. CYCLOPHOSPHAMIDE. [Concomitant]
     Active Substance: CYCLOPHOSPHAMIDE
     Indication: BREAST CANCER
     Dosage: 450 MILLIGRAM/SQ. METER, QD (450 FROM 150 MG/M2)
     Route: 042
     Dates: start: 20190515, end: 20190515
  5. MESNA. [Concomitant]
     Active Substance: MESNA
     Dosage: 400 MILLIGRAM, QD
     Route: 042
     Dates: start: 20190515, end: 20190515

REACTIONS (3)
  - Ammonia increased [Recovered/Resolved]
  - Coma [Recovered/Resolved]
  - Hepatic encephalopathy [Recovered/Resolved]

NARRATIVE: CASE EVENT DATE: 20190520
